FAERS Safety Report 4687251-6 (Version None)
Quarter: 2005Q2

REPORT INFORMATION
  Report Type: 
  Country: None (occurrence: None)
  Receive Date: 20050608
  Receipt Date: 20050601
  Transmission Date: 20051028
  Serious: Yes (Hospitalization)
  Sender: FDA-Public Use
  Company Number: 2005SP000333

PATIENT
  Age: 57 Year
  Sex: Female

DRUGS (4)
  1. LUNESTA [Suspect]
     Indication: SLEEP DISORDER
     Dosage: 2 MG; HS; ORAL
     Route: 048
     Dates: start: 19550418
  2. LEXAPRO [Concomitant]
  3. ZYPREXA [Concomitant]
  4. DEPAKOTE ER [Concomitant]

REACTIONS (1)
  - SUICIDAL IDEATION [None]
